FAERS Safety Report 4936894-0 (Version None)
Quarter: 2006Q1

REPORT INFORMATION
  Report Type: 
  Country: None (occurrence: None)
  Receive Date: 20060307
  Receipt Date: 20060301
  Transmission Date: 20060701
  Serious: Yes (Hospitalization, Disabling)
  Sender: FDA-Public Use
  Company Number: US-MERCK-0603USA00474

PATIENT
  Age: 60 Year
  Sex: Female
  Weight: 84 kg

DRUGS (2)
  1. VIOXX [Suspect]
     Indication: ARTHRITIS
     Route: 048
  2. VIOXX [Suspect]
     Indication: FIBROMYALGIA
     Route: 048

REACTIONS (4)
  - ANEURYSM [None]
  - CEREBROVASCULAR ACCIDENT [None]
  - DIZZINESS [None]
  - MYOCARDIAL INFARCTION [None]
